FAERS Safety Report 14552879 (Version 1)
Quarter: 2018Q1

REPORT INFORMATION
  Report Type: Spontaneous
  Country: HU (occurrence: HU)
  Receive Date: 20180220
  Receipt Date: 20180220
  Transmission Date: 20180509
  Serious: Yes (Death, Other)
  Sender: FDA-Public Use
  Company Number: HU-ACTELION-A-CH2018-167454

PATIENT
  Age: 53 Year
  Sex: Male
  Weight: 79 kg

DRUGS (3)
  1. REVATIO [Concomitant]
     Active Substance: SILDENAFIL CITRATE
     Indication: PULMONARY ARTERIAL HYPERTENSION
     Dosage: 20 MG, TID
     Route: 048
     Dates: start: 20110223, end: 20171226
  2. TRACLEER [Suspect]
     Active Substance: BOSENTAN
     Indication: PULMONARY ARTERIAL HYPERTENSION
     Dosage: 62.5 MG, BID
     Route: 048
     Dates: start: 20110812, end: 20151102
  3. OPSUMIT [Suspect]
     Active Substance: MACITENTAN
     Indication: PULMONARY ARTERIAL HYPERTENSION
     Dosage: 10 MG, OD
     Route: 048
     Dates: start: 20151102, end: 20171226

REACTIONS (3)
  - Disease progression [Recovering/Resolving]
  - Right ventricular failure [Fatal]
  - Pulmonary arterial hypertension [Recovering/Resolving]

NARRATIVE: CASE EVENT DATE: 2015
